FAERS Safety Report 8771461 (Version 1)
Quarter: 2012Q4

REPORT INFORMATION
  Report Type: 
  Country: US (occurrence: US)
  Receive Date: 20120905
  Receipt Date: 20120905
  Transmission Date: 20130627
  Serious: Yes (Other)
  Sender: FDA-Public Use
  Company Number: CHPA2012US019023

PATIENT
  Age: 38 Year
  Sex: Female

DRUGS (2)
  1. MAALOX ADV MAXIMUM STRENGTH ANTACID/ANTIGAS CHEWABLE [Suspect]
     Indication: GASTROOESOPHAGEAL REFLUX DISEASE
     Dosage: 1 or 2 DF, PRN
     Route: 048
     Dates: start: 2001
  2. CLARITIN [Concomitant]
     Indication: HYPERSENSITIVITY
     Dosage: Unk, ONCE A DAY

REACTIONS (3)
  - Fibromyalgia [Not Recovered/Not Resolved]
  - Therapeutic response unexpected [Unknown]
  - Off label use [Unknown]
